FAERS Safety Report 16414137 (Version 6)
Quarter: 2019Q4

REPORT INFORMATION
  Report Type: Report from Study
  Country: IL (occurrence: IL)
  Receive Date: 20190611
  Receipt Date: 20191230
  Transmission Date: 20200122
  Serious: Yes (Other)
  Sender: FDA-Public Use
  Company Number: PHHY2019IL131323

PATIENT
  Age: 17 Year
  Sex: Female
  Weight: 58 kg

DRUGS (5)
  1. ELTROXIN [Concomitant]
     Active Substance: LEVOTHYROXINE
     Indication: HYPOTHYROIDISM
     Dosage: 50 UG, QD FOR 5 DAYS
     Route: 065
  2. ELTROXIN [Concomitant]
     Active Substance: LEVOTHYROXINE
     Dosage: 100 UG, QD FOR 2 DAYS
     Route: 065
  3. DABRAFENIB [Suspect]
     Active Substance: DABRAFENIB
     Indication: GLIOMA
     Dosage: 125 MG, BID
     Route: 048
     Dates: start: 20181104
  4. DABRAFENIB [Suspect]
     Active Substance: DABRAFENIB
     Dosage: 125 MG, BID
     Route: 048
     Dates: start: 20191118
  5. DABRAFENIB [Suspect]
     Active Substance: DABRAFENIB
     Dosage: 125 MG, BID
     Route: 048
     Dates: start: 20191121

REACTIONS (4)
  - Melanocytic naevus [Not Recovered/Not Resolved]
  - Weight increased [Not Recovered/Not Resolved]
  - Concomitant disease aggravated [Not Recovered/Not Resolved]
  - Cataract subcapsular [Not Recovered/Not Resolved]

NARRATIVE: CASE EVENT DATE: 20190603
